FAERS Safety Report 11686809 (Version 4)
Quarter: 2018Q3

REPORT INFORMATION
  Report Type: Spontaneous
  Country: US (occurrence: US)
  Receive Date: 20151030
  Receipt Date: 20180822
  Transmission Date: 20181010
  Serious: Yes (Hospitalization, Other)
  Sender: FDA-Public Use
  Company Number: US-SA-2013SA118887

PATIENT
  Age: 75 Year
  Sex: Female
  Weight: 90.71 kg

DRUGS (15)
  1. SOLOSTAR [Suspect]
     Active Substance: DEVICE
     Indication: TYPE 2 DIABETES MELLITUS
     Dates: start: 2007
  2. LIPITOR [Concomitant]
     Active Substance: ATORVASTATIN CALCIUM
  3. LANTUS SOLOSTAR [Suspect]
     Active Substance: INSULIN GLARGINE
     Indication: TYPE 2 DIABETES MELLITUS
     Dosage: UNK UNK,BID
     Route: 051
     Dates: start: 2007
  4. SOLOSTAR [Suspect]
     Active Substance: DEVICE
     Dates: start: 2007
  5. LEVOTHYROXINE. [Concomitant]
     Active Substance: LEVOTHYROXINE
  6. LANTUS SOLOSTAR [Suspect]
     Active Substance: INSULIN GLARGINE
     Dosage: UNK, BID
  7. FUROSEMIDE. [Concomitant]
     Active Substance: FUROSEMIDE
  8. AMIODARONE [Concomitant]
     Active Substance: AMIODARONE
  9. ALTACE [Concomitant]
     Active Substance: RAMIPRIL
  10. LANTUS SOLOSTAR [Suspect]
     Active Substance: INSULIN GLARGINE
     Dosage: UNK UNK,BID
     Route: 051
     Dates: start: 2007
  11. HUMALOG [Concomitant]
     Active Substance: INSULIN LISPRO
     Dosage: UNK
  12. LANTUS SOLOSTAR [Suspect]
     Active Substance: INSULIN GLARGINE
     Dosage: UNK UNK,BID
     Route: 051
     Dates: start: 2007
  13. SOLOSTAR [Suspect]
     Active Substance: DEVICE
     Dates: start: 2007
  14. COREG [Concomitant]
     Active Substance: CARVEDILOL
  15. NOVOLOG [Suspect]
     Active Substance: INSULIN ASPART
     Indication: PRODUCT USED FOR UNKNOWN INDICATION
     Dosage: UNK UNK,UNK
     Route: 065

REACTIONS (6)
  - Injection site pain [Not Recovered/Not Resolved]
  - Frustration tolerance decreased [Unknown]
  - Device operational issue [Unknown]
  - Coronary artery bypass [Unknown]
  - Implantable defibrillator insertion [Unknown]
  - Drug administration error [Unknown]

NARRATIVE: CASE EVENT DATE: 2007
